FAERS Safety Report 12659647 (Version 4)
Quarter: 2016Q4

REPORT INFORMATION
  Report Type: Spontaneous
  Country: BR (occurrence: BR)
  Receive Date: 20160817
  Receipt Date: 20161101
  Transmission Date: 20170207
  Serious: Yes (Hospitalization)
  Sender: FDA-Public Use
  Company Number: BR-ELI_LILLY_AND_COMPANY-BR201607012688

PATIENT
  Age: 82 Year
  Sex: Female

DRUGS (2)
  1. FORTEO [Suspect]
     Active Substance: TERIPARATIDE
     Indication: OSTEOPOROSIS
     Dosage: 1 DF, EACH EVENING
     Route: 058
     Dates: start: 20160719
  2. NORIPURUM [Suspect]
     Active Substance: IRON POLYMALTOSE
     Indication: PRODUCT USED FOR UNKNOWN INDICATION
     Dosage: UNK, UNKNOWN
     Route: 042

REACTIONS (14)
  - Back pain [Unknown]
  - Liver iron concentration increased [Unknown]
  - Tremor [Unknown]
  - Injection site injury [Unknown]
  - Serum ferritin increased [Unknown]
  - Spinal pain [Unknown]
  - Rheumatoid arthritis [Unknown]
  - Osteoporotic fracture [Unknown]
  - Injection site erythema [Recovered/Resolved]
  - Neck pain [Unknown]
  - C-reactive protein increased [Unknown]
  - Arthralgia [Unknown]
  - Blood iron increased [Unknown]
  - Red blood cell sedimentation rate increased [Unknown]

NARRATIVE: CASE EVENT DATE: 20160726
